FAERS Safety Report 5573555-1 (Version None)
Quarter: 2007Q4

REPORT INFORMATION
  Report Type: 
  Country: None (occurrence: None)
  Receive Date: 20071220
  Receipt Date: 20071220
  Transmission Date: 20080405
  Serious: Yes (Hospitalization)
  Sender: FDA-Public Use
  Company Number: None

PATIENT
  Age: 85 Year
  Sex: Male

DRUGS (1)
  1. CIPROFLOXACIN [Suspect]
     Dosage: 250MG  BID  PO
     Route: 048
     Dates: start: 20071004, end: 20071011

REACTIONS (3)
  - CANDIDIASIS [None]
  - MUCOSAL INFLAMMATION [None]
  - RASH MORBILLIFORM [None]
